FAERS Safety Report 9323012 (Version 2)
Quarter: 2013Q2

REPORT INFORMATION
  Report Type: Spontaneous
  Country: US (occurrence: US)
  Receive Date: 20130603
  Receipt Date: 20130625
  Transmission Date: 20140414
  Serious: No
  Sender: FDA-Public Use
  Company Number: US-009507513-1305USA017315

PATIENT
  Sex: Male

DRUGS (2)
  1. ASMANEX TWISTHALER [Suspect]
     Indication: ASTHMA
     Dosage: 220 MCG/ 2 INHALATIONS QPM
     Route: 055
     Dates: start: 20130327
  2. ASMANEX TWISTHALER [Suspect]
     Dosage: 2 INHALATIONS QHS
     Route: 055
     Dates: start: 20070627

REACTIONS (3)
  - Drug dose omission [Unknown]
  - Product physical issue [Unknown]
  - No adverse event [Unknown]
